FAERS Safety Report 14961043 (Version 3)
Quarter: 2018Q3

REPORT INFORMATION
  Report Type: Spontaneous
  Country: JP (occurrence: JP)
  Receive Date: 20180531
  Receipt Date: 20180802
  Transmission Date: 20181010
  Serious: Yes (Hospitalization, Other)
  Sender: FDA-Public Use
  Company Number: JP-UCBSA-2018024353

PATIENT
  Age: 5 Decade
  Sex: Male

DRUGS (2)
  1. E KEPPRA [Suspect]
     Active Substance: LEVETIRACETAM
     Indication: OFF LABEL USE
  2. E KEPPRA [Suspect]
     Active Substance: LEVETIRACETAM
     Indication: SCHIZOPHRENIA
     Dosage: 2000 MG, DAILY
     Route: 048

REACTIONS (3)
  - Epilepsy [Unknown]
  - Asphyxia [Recovered/Resolved]
  - Off label use [Unknown]

NARRATIVE: CASE EVENT DATE: 20180526
